FAERS Safety Report 4831743-3 (Version None)
Quarter: 2005Q4

REPORT INFORMATION
  Report Type: 
  Country: None (occurrence: None)
  Receive Date: 20051114
  Receipt Date: 20051025
  Transmission Date: 20060501
  Serious: Yes (Hospitalization, Other)
  Sender: FDA-Public Use
  Company Number: ENTC2005-0308

PATIENT

DRUGS (4)
  1. STALEVO 100 [Suspect]
     Indication: PARKINSON'S DISEASE
     Dosage: 50/12.5/200 MG, ORAL
     Route: 048
     Dates: start: 20050101, end: 20050401
  2. LITHIUM [Concomitant]
  3. ANTIHYPERTENSIVES [Concomitant]
  4. ANTIDIABETICS [Concomitant]

REACTIONS (8)
  - DEPRESSED LEVEL OF CONSCIOUSNESS [None]
  - DYSPHAGIA [None]
  - HAEMORRHAGE [None]
  - MENTAL DISORDER [None]
  - MOVEMENT DISORDER [None]
  - PHARYNGEAL HAEMORRHAGE [None]
  - PSYCHOMOTOR HYPERACTIVITY [None]
  - TARDIVE DYSKINESIA [None]
